FAERS Safety Report 24555518 (Version 10)
Quarter: 2025Q4

REPORT INFORMATION
  Report Type: Spontaneous
  Country: US (occurrence: US)
  Receive Date: 20241028
  Receipt Date: 20251229
  Transmission Date: 20260119
  Serious: Yes (Hospitalization, Other)
  Sender: TRAVERE THERAPEUTICS
  Company Number: US-TRAVERE-2024TVT00996

PATIENT
  Age: 71 Year
  Sex: Male

DRUGS (6)
  1. FILSPARI [Suspect]
     Active Substance: SPARSENTAN
     Indication: IgA nephropathy
     Route: 048
     Dates: start: 20240912
  2. FILSPARI [Suspect]
     Active Substance: SPARSENTAN
     Dosage: BREAK TABLETS IN HALF AND TAKE A 200 MG DOSE.?EXPIRY DATE: 31-MAY-2026
     Route: 048
     Dates: start: 202503
  3. FILSPARI [Suspect]
     Active Substance: SPARSENTAN
     Dosage: TEMPORARILY DISCONTINUE FILSPARI
     Route: 048
  4. FILSPARI [Suspect]
     Active Substance: SPARSENTAN
     Route: 048
  5. FUROSEMIDE [Concomitant]
     Active Substance: FUROSEMIDE
  6. TARPEYO [Concomitant]
     Active Substance: BUDESONIDE

REACTIONS (7)
  - Hypotension [None]
  - Oedema [None]
  - Dizziness [None]
  - Blood pressure fluctuation [Unknown]
  - Feeling abnormal [Unknown]
  - Off label use [Unknown]
  - Inappropriate schedule of product administration [Unknown]

NARRATIVE: CASE EVENT DATE: 20241004
